FAERS Safety Report 9259625 (Version 1)
Quarter: 2013Q2

REPORT INFORMATION
  Report Type: Spontaneous
  Country: US (occurrence: US)
  Receive Date: 20130429
  Receipt Date: 20130429
  Transmission Date: 20140414
  Serious: Yes (Other)
  Sender: FDA-Public Use
  Company Number: US-UCBSA-084264

PATIENT
  Age: 66 Year
  Sex: Male

DRUGS (2)
  1. CIMZIA [Suspect]
     Indication: RHEUMATOID ARTHRITIS
     Dosage: 3 INDUCTION DOSES
     Dates: start: 20130321
  2. CIMZIA [Suspect]
     Indication: PSORIATIC ARTHROPATHY
     Dosage: 3 INDUCTION DOSES
     Dates: start: 20130321

REACTIONS (6)
  - Psoriasis [Unknown]
  - Injection site haemorrhage [Unknown]
  - Injection site reaction [Recovered/Resolved]
  - Rhinorrhoea [Recovered/Resolved]
  - Sinus headache [Recovered/Resolved]
  - Nasal discharge discolouration [Recovered/Resolved]
